FAERS Safety Report 5750447-6 (Version None)
Quarter: 2008Q2

REPORT INFORMATION
  Report Type: 
  Country: None (occurrence: None)
  Receive Date: 20080528
  Receipt Date: 20080213
  Transmission Date: 20081010
  Serious: No
  Sender: FDA-Public Use
  Company Number: US-KINGPHARMUSA00001-K200800200

PATIENT

DRUGS (1)
  1. AVINZA [Suspect]
     Indication: FIBROMYALGIA
     Dosage: 120 MG, QD
     Route: 048

REACTIONS (2)
  - DRUG DIVERSION [None]
  - DRUG INEFFECTIVE [None]
